FAERS Safety Report 15645417 (Version 1)
Quarter: 2018Q4

REPORT INFORMATION
  Report Type: Spontaneous
  Country: US (occurrence: US)
  Receive Date: 20181121
  Receipt Date: 20181121
  Transmission Date: 20190205
  Serious: Yes (Other)
  Sender: FDA-Public Use
  Company Number: US-CELGENEUS-USA-20181104532

PATIENT
  Sex: Male

DRUGS (1)
  1. REVLIMID [Suspect]
     Active Substance: LENALIDOMIDE
     Indication: MYELODYSPLASTIC SYNDROME
     Dosage: 10 MILLIGRAM
     Route: 048
     Dates: start: 201809

REACTIONS (4)
  - Hepatotoxicity [Unknown]
  - Fatigue [Unknown]
  - Abdominal pain upper [Unknown]
  - Discomfort [Unknown]

NARRATIVE: CASE EVENT DATE: 2018
